FAERS Safety Report 11111112 (Version 1)
Quarter: 2015Q2

REPORT INFORMATION
  Report Type: Spontaneous
  Country: US (occurrence: US)
  Receive Date: 20150513
  Receipt Date: 20150513
  Transmission Date: 20150821
  Serious: Yes (Hospitalization, Other)
  Sender: FDA-Public Use
  Company Number: US-ELI_LILLY_AND_COMPANY-US201505001486

PATIENT
  Age: 46 Year
  Sex: Male

DRUGS (1)
  1. HUMATROPE [Suspect]
     Active Substance: SOMATROPIN
     Indication: BLOOD GROWTH HORMONE
     Dosage: UNK UNK, UNKNOWN
     Route: 065
     Dates: start: 20150414

REACTIONS (2)
  - Confusional state [Unknown]
  - Syncope [Unknown]

NARRATIVE: CASE EVENT DATE: 20150418
